FAERS Safety Report 11718574 (Version 1)
Quarter: 2015Q4

REPORT INFORMATION
  Report Type: Spontaneous
  Country: GB (occurrence: GB)
  Receive Date: 20151110
  Receipt Date: 20151110
  Transmission Date: 20160304
  Serious: Yes (Other)
  Sender: FDA-Public Use
  Company Number: GB-WATSON-2015-24025

PATIENT
  Age: 47 Year
  Sex: Female
  Weight: 91 kg

DRUGS (5)
  1. GLYCERYL TRINITRATE [Concomitant]
     Active Substance: NITROGLYCERIN
     Indication: PRODUCT USED FOR UNKNOWN INDICATION
     Dosage: 1 DF, PRN
     Route: 065
     Dates: start: 20150727
  2. BISOPROLOL [Concomitant]
     Active Substance: BISOPROLOL
     Indication: BLOOD PRESSURE MANAGEMENT
     Dosage: 1 DF, QAM, LOW DOSE.
     Route: 065
     Dates: start: 20150724
  3. CERELLE [Concomitant]
     Indication: PRODUCT USED FOR UNKNOWN INDICATION
     Dosage: 1 DF, DAILY
     Route: 065
     Dates: start: 20150216
  4. LOSARTAN (UNKNOWN) [Suspect]
     Active Substance: LOSARTAN
     Indication: BLOOD PRESSURE MANAGEMENT
     Dosage: UNK
     Route: 065
     Dates: start: 20150420
  5. FLUOXETINE [Concomitant]
     Active Substance: FLUOXETINE HYDROCHLORIDE
     Indication: PRODUCT USED FOR UNKNOWN INDICATION
     Dosage: 1 DF, DAILY
     Route: 065
     Dates: start: 20141201

REACTIONS (4)
  - Hyperhidrosis [Recovered/Resolved]
  - Angina pectoris [Recovered/Resolved]
  - Pain in extremity [Recovered/Resolved]
  - Musculoskeletal pain [Recovered/Resolved]

NARRATIVE: CASE EVENT DATE: 20150701
